FAERS Safety Report 17468924 (Version 1)
Quarter: 2020Q1

REPORT INFORMATION
  Report Type: Report from Study
  Country: US (occurrence: US)
  Receive Date: 20200227
  Receipt Date: 20200227
  Transmission Date: 20200409
  Serious: No
  Sender: FDA-Public Use
  Company Number: US-AEGERION PHARMACEUTICAL, INC-AEGR004535

PATIENT
  Age: 37 Year
  Sex: Male

DRUGS (62)
  1. METRELEPTIN [Suspect]
     Active Substance: METRELEPTIN
     Indication: LIPODYSTROPHY ACQUIRED
     Dosage: 2.5 MG, QD
     Route: 058
     Dates: start: 20160613, end: 20160619
  2. METRELEPTIN [Suspect]
     Active Substance: METRELEPTIN
     Dosage: 4.75 MG, QD
     Route: 058
     Dates: start: 20160815, end: 20160821
  3. HUMULIN R [Concomitant]
     Active Substance: INSULIN HUMAN
     Indication: DIABETES MELLITUS
     Dosage: 2000 IU, QD (CONT. PUMP)
     Route: 058
  4. DIGOXIN. [Concomitant]
     Active Substance: DIGOXIN
     Indication: ATRIAL FIBRILLATION
     Dosage: 125 UG, BID
     Route: 048
     Dates: start: 20180108
  5. SPIRONOLACTONE. [Concomitant]
     Active Substance: SPIRONOLACTONE
     Indication: HYPERTENSION
     Dosage: 25 MG, QD
     Route: 048
     Dates: start: 20190612
  6. METRELEPTIN [Suspect]
     Active Substance: METRELEPTIN
     Dosage: 7.5 MG, QD
     Route: 058
     Dates: start: 20161031, end: 20161106
  7. METRELEPTIN [Suspect]
     Active Substance: METRELEPTIN
     Dosage: 8.5 MG, QD
     Route: 058
     Dates: start: 20161128, end: 20161204
  8. POTASSIUM CHLORIDE. [Concomitant]
     Active Substance: POTASSIUM CHLORIDE
     Indication: SUPPLEMENTATION THERAPY
     Dosage: 1 TABLET, QD
     Route: 048
     Dates: end: 20181226
  9. OMEGA 3 FISH OIL                   /01334101/ [Concomitant]
     Active Substance: FISH OIL
     Indication: HYPERTRIGLYCERIDAEMIA
     Dosage: 1 G, QD
     Route: 048
     Dates: start: 2017
  10. METOPROLOL SUCCINATE. [Concomitant]
     Active Substance: METOPROLOL SUCCINATE
     Indication: HYPERTENSION
     Dosage: 100 MG, QD
     Route: 048
     Dates: start: 2017, end: 20190822
  11. AZATHIOPRINE. [Concomitant]
     Active Substance: AZATHIOPRINE
     Indication: IMMUNOSUPPRESSION
     Dosage: 100 MG, QD
     Route: 048
     Dates: start: 20190829
  12. METRELEPTIN [Suspect]
     Active Substance: METRELEPTIN
     Dosage: 3.0 MG, QD
     Route: 058
     Dates: start: 20160627, end: 20160704
  13. METRELEPTIN [Suspect]
     Active Substance: METRELEPTIN
     Dosage: 5.25 MG, QD
     Route: 058
     Dates: start: 20160829, end: 20160904
  14. METRELEPTIN [Suspect]
     Active Substance: METRELEPTIN
     Dosage: 6.25 MG, QD
     Route: 058
     Dates: start: 20160926, end: 20161002
  15. METRELEPTIN [Suspect]
     Active Substance: METRELEPTIN
     Dosage: 6.75 MG, QD
     Route: 058
     Dates: start: 20161010, end: 20161016
  16. METRELEPTIN [Suspect]
     Active Substance: METRELEPTIN
     Dosage: 8.25 MG, QD
     Route: 058
     Dates: start: 20161121, end: 20161127
  17. SACUBITRIL W/VALSARTAN [Concomitant]
     Active Substance: SACUBITRIL\VALSARTAN
     Indication: CARDIAC FAILURE CONGESTIVE
     Dosage: 51 MG, QD
     Route: 048
     Dates: start: 20180828
  18. SPIRONOLACTONE. [Concomitant]
     Active Substance: SPIRONOLACTONE
     Indication: OEDEMA PERIPHERAL
     Dosage: 25 MG, BID
     Route: 048
     Dates: start: 20190108, end: 20190131
  19. LIDOCAINE W/EPINEPHRINE [Concomitant]
     Active Substance: EPINEPHRINE\LIDOCAINE
     Indication: IMPLANTABLE DEFIBRILLATOR INSERTION
     Dosage: 1 INJECTION, QD
     Route: 030
     Dates: start: 20180726, end: 20180726
  20. DEXTROSE. [Concomitant]
     Active Substance: DEXTROSE
     Indication: IMPLANTABLE DEFIBRILLATOR INSERTION
     Dosage: 13 ML, QD
     Route: 042
     Dates: start: 20180726, end: 20180726
  21. METRELEPTIN [Suspect]
     Active Substance: METRELEPTIN
     Dosage: 2.75 MG, QD
     Route: 058
     Dates: start: 20160620, end: 20160626
  22. METRELEPTIN [Suspect]
     Active Substance: METRELEPTIN
     Dosage: 3.75 MG, QD
     Route: 058
     Dates: start: 20160718, end: 20160724
  23. METRELEPTIN [Suspect]
     Active Substance: METRELEPTIN
     Dosage: 7.0 MG, QD
     Route: 058
     Dates: start: 20161017, end: 20161023
  24. METRELEPTIN [Suspect]
     Active Substance: METRELEPTIN
     Dosage: 9.25 MG, QD
     Dates: start: 20161219, end: 20161221
  25. ASPIRIN                            /00002701/ [Concomitant]
     Active Substance: ASPIRIN
     Indication: CARDIAC FAILURE CONGESTIVE
     Dosage: 81 MG, QD
     Route: 048
     Dates: start: 20180315
  26. APIXABAN [Concomitant]
     Active Substance: APIXABAN
     Indication: CARDIAC FAILURE CONGESTIVE
     Dosage: 5 MG, BID
     Route: 048
     Dates: start: 20180108, end: 20180131
  27. BISOPROLOL [Concomitant]
     Active Substance: BISOPROLOL
     Indication: HYPERTENSION
     Dosage: 10 MG, QD
     Route: 048
     Dates: start: 20190822
  28. METRELEPTIN [Suspect]
     Active Substance: METRELEPTIN
     Dosage: 5.5 MG, QD
     Route: 058
     Dates: start: 20160905, end: 20160911
  29. METRELEPTIN [Suspect]
     Active Substance: METRELEPTIN
     Dosage: 6 MG, QD
     Route: 058
     Dates: start: 20160919, end: 20160925
  30. ATORVASTATIN [Concomitant]
     Active Substance: ATORVASTATIN
     Indication: HYPERTRIGLYCERIDAEMIA
     Dosage: 20 MG, QD
     Route: 048
     Dates: start: 20161223
  31. FUROSEMIDE. [Concomitant]
     Active Substance: FUROSEMIDE
     Indication: CARDIAC FAILURE CONGESTIVE
     Dosage: 40 MG, QD
     Route: 048
     Dates: start: 2016, end: 20181024
  32. FUROSEMIDE. [Concomitant]
     Active Substance: FUROSEMIDE
     Indication: OEDEMA PERIPHERAL
     Dosage: 40 MG, BID
     Route: 042
     Dates: start: 20180107, end: 20180107
  33. TORSEMIDE. [Concomitant]
     Active Substance: TORSEMIDE
     Indication: CARDIAC FAILURE CONGESTIVE
     Dosage: 20 MG, QD
     Route: 048
     Dates: start: 20180315, end: 20180827
  34. CEFAZOLIN [Concomitant]
     Active Substance: CEFAZOLIN
     Indication: IMPLANTABLE DEFIBRILLATOR INSERTION
     Dosage: 2 G, QD
     Route: 042
     Dates: start: 20180726, end: 20180726
  35. GLUCAGON. [Concomitant]
     Active Substance: GLUCAGON
     Indication: HYPOGLYCAEMIA
     Dosage: 1 MG, PRN
     Route: 058
  36. AMIODARONE [Concomitant]
     Active Substance: AMIODARONE
     Indication: CARDIAC FAILURE CONGESTIVE
     Dosage: 400 MG, BID
     Route: 048
     Dates: start: 20190919, end: 20191003
  37. METRELEPTIN [Suspect]
     Active Substance: METRELEPTIN
     Dosage: 4.0 MG, QD
     Route: 058
     Dates: start: 20160725, end: 20160731
  38. METRELEPTIN [Suspect]
     Active Substance: METRELEPTIN
     Dosage: 4.5 MG, QD
     Route: 058
     Dates: start: 20160808, end: 20160814
  39. METRELEPTIN [Suspect]
     Active Substance: METRELEPTIN
     Dosage: 7.25 MG, QD
     Route: 058
     Dates: start: 20161024, end: 20161030
  40. METRELEPTIN [Suspect]
     Active Substance: METRELEPTIN
     Dosage: 7.75 MG, QD
     Route: 058
     Dates: start: 20161107, end: 20161113
  41. CARVEDILOL. [Concomitant]
     Active Substance: CARVEDILOL
     Indication: CARDIAC FAILURE CONGESTIVE
     Dosage: 12.5 MG, BID
     Route: 048
     Dates: end: 20181024
  42. HEPARIN [Concomitant]
     Active Substance: HEPARIN SODIUM
     Indication: CARDIAC FAILURE CONGESTIVE
     Dosage: 28 IU/KG/HR, CONTINUOUS
     Route: 042
     Dates: start: 20180312, end: 20180312
  43. AMIODARONE [Concomitant]
     Active Substance: AMIODARONE
     Dosage: 200 MG, QD
     Route: 048
     Dates: start: 20191004
  44. METRELEPTIN [Suspect]
     Active Substance: METRELEPTIN
     Dosage: 3.25 MG, QD
     Route: 058
     Dates: start: 20160704, end: 20160710
  45. METRELEPTIN [Suspect]
     Active Substance: METRELEPTIN
     Dosage: 4.25 MG, QD
     Route: 058
     Dates: start: 20160801, end: 20160807
  46. METRELEPTIN [Suspect]
     Active Substance: METRELEPTIN
     Dosage: 5.75 MG, QD
     Route: 058
     Dates: start: 20160912, end: 20160918
  47. METRELEPTIN [Suspect]
     Active Substance: METRELEPTIN
     Dosage: 8 MG, QD
     Route: 058
     Dates: start: 20161114, end: 20161120
  48. METRELEPTIN [Suspect]
     Active Substance: METRELEPTIN
     Dosage: 8.75 MG, QD
     Dates: start: 20161205, end: 20161211
  49. METRELEPTIN [Suspect]
     Active Substance: METRELEPTIN
     Dosage: 9 MG, QD
     Route: 058
     Dates: start: 20161212, end: 20161218
  50. LISINOPRIL. [Concomitant]
     Active Substance: LISINOPRIL
     Indication: HYPERTENSION
     Dosage: 10 MG, QD
     Route: 048
     Dates: end: 20181024
  51. FUROSEMIDE. [Concomitant]
     Active Substance: FUROSEMIDE
     Dosage: 40 MG, QD
     Route: 042
     Dates: start: 20180306, end: 20180312
  52. COENZYME Q10 [Concomitant]
     Active Substance: UBIDECARENONE
     Indication: SUPPLEMENTATION THERAPY
     Dosage: 10 MG, QD
     Route: 048
     Dates: start: 2017
  53. WARFARIN [Concomitant]
     Active Substance: WARFARIN
     Indication: ATRIAL FIBRILLATION
     Dosage: 7.5 MG, QD
     Route: 048
     Dates: start: 20180315
  54. MILRINONE [Concomitant]
     Active Substance: MILRINONE
     Indication: CARDIAC DISORDER
     Dosage: 0.2 MCG/KG/MIN, QD
     Route: 042
     Dates: start: 20180306, end: 20180307
  55. NIPRIDE [Concomitant]
     Active Substance: SODIUM NITROPRUSSIDE
     Indication: CARDIAC FAILURE CONGESTIVE
     Dosage: CONTINOUSE
     Route: 042
     Dates: start: 20180306, end: 20180307
  56. AUGMENTIN [Concomitant]
     Active Substance: AMOXICILLIN\CLAVULANATE POTASSIUM
     Indication: CARDIAC DISORDER
     Dosage: 1 TABLET, BID
     Route: 048
     Dates: start: 20180823, end: 20180827
  57. METRELEPTIN [Suspect]
     Active Substance: METRELEPTIN
     Dosage: 3.5 MG, QD
     Route: 058
     Dates: start: 20160711, end: 20160717
  58. METRELEPTIN [Suspect]
     Active Substance: METRELEPTIN
     Dosage: 5 MG, QD
     Route: 058
     Dates: start: 20160822, end: 20160828
  59. METRELEPTIN [Suspect]
     Active Substance: METRELEPTIN
     Dosage: 6.5 MG, QD
     Route: 058
     Dates: start: 20161003, end: 20161009
  60. METRELEPTIN [Suspect]
     Active Substance: METRELEPTIN
     Dosage: 5.0 MG, QD
     Route: 058
     Dates: start: 20161222
  61. MAGNESIUM [Concomitant]
     Active Substance: MAGNESIUM
     Indication: SUPPLEMENTATION THERAPY
     Dosage: 250 MG, QD
     Route: 048
     Dates: end: 20181024
  62. TORSEMIDE. [Concomitant]
     Active Substance: TORSEMIDE
     Dosage: 30 MG, QD
     Route: 048
     Dates: start: 20180828

REACTIONS (1)
  - Ear infection [Recovered/Resolved]

NARRATIVE: CASE EVENT DATE: 20190814
